FAERS Safety Report 16663821 (Version 1)
Quarter: 2019Q3

REPORT INFORMATION
  Report Type: Report from Study
  Country: None (occurrence: TW)
  Receive Date: 20190802
  Receipt Date: 20190802
  Transmission Date: 20191004
  Serious: Yes (Other)
  Sender: FDA-Public Use
  Company Number: TW-BAUSCH-BL-2019-021761

PATIENT
  Sex: Female

DRUGS (3)
  1. COLCHICINE. [Suspect]
     Active Substance: COLCHICINE
     Indication: BEHCET^S SYNDROME
     Route: 065
  2. PREDNISOLONE. [Suspect]
     Active Substance: PREDNISOLONE
     Indication: BEHCET^S SYNDROME
     Dosage: DISCONTINUED 6 MONTHS LATER. (DURATION OF STEROID USE BEFORE ATNF WAS 3.3 YEARS)
     Route: 048
  3. 5-ASA [Suspect]
     Active Substance: MESALAMINE
     Indication: BEHCET^S SYNDROME
     Route: 065

REACTIONS (3)
  - Drug dependence [Unknown]
  - Gastrointestinal haemorrhage [Unknown]
  - Mouth ulceration [Unknown]
